FAERS Safety Report 8654367 (Version 2)
Quarter: 2012Q4

REPORT INFORMATION
  Report Type: 
  Country: JP (occurrence: JP)
  Receive Date: 20120709
  Receipt Date: 20121017
  Transmission Date: 20130627
  Serious: Yes (Life-Threatening, Hospitalization)
  Sender: FDA-Public Use
  Company Number: JP-ASTRAZENECA-2012SE45576

PATIENT
  Age: 55 Year
  Sex: Male

DRUGS (4)
  1. ATENOLOL [Suspect]
     Dosage: 47 tablets (1175 mg) in a day
     Route: 048
  2. OLMESARTAN MEDOXOMIL [Concomitant]
     Dosage: 47 TABLETS (940 MG) in a day
     Route: 048
  3. NIFEDIPINE [Concomitant]
     Dosage: 42 TABLETS (1680 MG) in a day
     Route: 048
  4. DOXAZOSIN MESILATE [Concomitant]
     Dosage: 39 TABLETS (78 MG) in a day
     Route: 048

REACTIONS (3)
  - Suicide attempt [Unknown]
  - Obsessive thoughts [Unknown]
  - Shock [Recovered/Resolved]
